FAERS Safety Report 5695927-7 (Version None)
Quarter: 2008Q2

REPORT INFORMATION
  Report Type: 
  Country: None (occurrence: None)
  Receive Date: 20080407
  Receipt Date: 20080327
  Transmission Date: 20081010
  Serious: Yes (Hospitalization)
  Sender: FDA-Public Use
  Company Number: FR-JNJFOC-20080205383

PATIENT
  Age: 75 Year
  Sex: Male

DRUGS (7)
  1. TOPALGIC LP [Suspect]
     Route: 048
  2. TOPALGIC LP [Suspect]
     Indication: BACK PAIN
     Route: 048
  3. PREVISCAN [Interacting]
     Indication: ATRIAL FIBRILLATION
     Route: 048
  4. DOLIPRANE [Suspect]
     Indication: BACK PAIN
     Route: 048
  5. PERFALGAN [Suspect]
     Indication: BACK PAIN
     Route: 042
  6. TOPALGIC [Suspect]
     Indication: BACK PAIN
     Route: 048
  7. CACIT D3 [Concomitant]
     Route: 065

REACTIONS (3)
  - DRUG INTERACTION [None]
  - INTERNATIONAL NORMALISED RATIO INCREASED [None]
  - MUSCLE HAEMORRHAGE [None]
